FAERS Safety Report 24544181 (Version 1)
Quarter: 2024Q4

REPORT INFORMATION
  Report Type: Other
  Country: US (occurrence: US)
  Receive Date: 20241024
  Receipt Date: 20241024
  Transmission Date: 20250114
  Serious: Yes (Life-Threatening)
  Sender: B BRAUN
  Company Number: US-B.Braun Medical Inc.-2163674

PATIENT
  Age: 46 Year
  Sex: Male

DRUGS (5)
  1. CEFEPIME HYDROCHLORIDE [Suspect]
     Active Substance: CEFEPIME HYDROCHLORIDE
     Indication: Sepsis
  2. METRONIDAZOLE [Suspect]
     Active Substance: METRONIDAZOLE
  3. Unspecified pressors [Concomitant]
  4. Intravenous fluids [Concomitant]
  5. VANCOMYCIN [Suspect]
     Active Substance: VANCOMYCIN

REACTIONS (1)
  - Drug ineffective [Unknown]
